FAERS Safety Report 18427865 (Version 2)
Quarter: 2020Q4

REPORT INFORMATION
  Report Type: Spontaneous
  Country: CA (occurrence: CA)
  Receive Date: 20201026
  Receipt Date: 20201118
  Transmission Date: 20210114
  Serious: Yes (Other)
  Sender: FDA-Public Use
  Company Number: CA-GLAXOSMITHKLINE-CA2020AMR176624

PATIENT
  Sex: Female

DRUGS (4)
  1. ZEJULA [Suspect]
     Active Substance: NIRAPARIB
     Indication: MALIGNANT PERITONEAL NEOPLASM
  2. ZEJULA [Suspect]
     Active Substance: NIRAPARIB
     Indication: FALLOPIAN TUBE CANCER
     Dosage: 200 MG
  3. ZEJULA [Suspect]
     Active Substance: NIRAPARIB
     Indication: OVARIAN EPITHELIAL CANCER
     Dosage: 300 MG, QD
     Route: 048
     Dates: start: 20200730
  4. NAPROXEN. [Suspect]
     Active Substance: NAPROXEN
     Indication: PRODUCT USED FOR UNKNOWN INDICATION
     Dosage: UNK

REACTIONS (22)
  - Pain [Not Recovered/Not Resolved]
  - Decreased interest [Unknown]
  - Urine abnormality [Unknown]
  - Muscle spasms [Unknown]
  - Dizziness [Unknown]
  - Alopecia [Unknown]
  - Renal impairment [Unknown]
  - Malaise [Unknown]
  - Amnesia [Unknown]
  - Blood creatinine increased [Unknown]
  - Fatigue [Not Recovered/Not Resolved]
  - Adverse drug reaction [Unknown]
  - Urine odour abnormal [Unknown]
  - Restlessness [Unknown]
  - Dyspnoea [Unknown]
  - Headache [Unknown]
  - Vision blurred [Unknown]
  - Insomnia [Unknown]
  - Dyskinesia [Unknown]
  - Contusion [Unknown]
  - Feeling cold [Unknown]
  - Asthenia [Unknown]
